FAERS Safety Report 7770118-4 (Version None)
Quarter: 2011Q3

REPORT INFORMATION
  Report Type: 
  Country: None (occurrence: None)
  Receive Date: 20110920
  Receipt Date: 20110912
  Transmission Date: 20111222
  Serious: Yes (Hospitalization)
  Sender: FDA-Public Use
  Company Number: MSTR-NO-1104S-0096

PATIENT
  Age: 57 Year
  Sex: Female

DRUGS (1)
  1. METASTRON [Suspect]
     Indication: METASTATIC PAIN
     Dosage: NR, SINGLE DOSE, INTRAVENOUS
     Route: 042
     Dates: start: 20110308, end: 20110308

REACTIONS (1)
  - DIARRHOEA [None]
